FAERS Safety Report 14829321 (Version 4)
Quarter: 2019Q2

REPORT INFORMATION
  Report Type: Spontaneous
  Country: US (occurrence: US)
  Receive Date: 20180430
  Receipt Date: 20190409
  Transmission Date: 20190711
  Serious: Yes (Other)
  Sender: FDA-Public Use
  Company Number: US-ASTRAZENECA-2018SE51106

PATIENT
  Sex: Male

DRUGS (16)
  1. PREVACID 24 HR [Suspect]
     Active Substance: LANSOPRAZOLE
     Route: 065
  2. FLOVENT [Concomitant]
     Active Substance: FLUTICASONE PROPIONATE
  3. LANSOPRAZOLE. [Concomitant]
     Active Substance: LANSOPRAZOLE
  4. NEXIUM [Suspect]
     Active Substance: ESOMEPRAZOLE MAGNESIUM
     Route: 048
  5. NEXIUM 24HR [Suspect]
     Active Substance: ESOMEPRAZOLE MAGNESIUM
     Route: 048
  6. DEXILANT [Suspect]
     Active Substance: DEXLANSOPRAZOLE
     Route: 065
  7. PROTONIX [Suspect]
     Active Substance: PANTOPRAZOLE SODIUM
     Route: 065
  8. BENICAR [Concomitant]
     Active Substance: OLMESARTAN MEDOXOMIL
  9. PRILOSEC [Suspect]
     Active Substance: OMEPRAZOLE MAGNESIUM
     Route: 048
  10. PRILOSEC [Suspect]
     Active Substance: OMEPRAZOLE MAGNESIUM
     Dosage: VARIOUS DATES AND YEARS
     Route: 048
  11. PREVACID [Suspect]
     Active Substance: LANSOPRAZOLE
     Route: 065
  12. METFORMIN [Concomitant]
     Active Substance: METFORMIN HYDROCHLORIDE
  13. PRILOSEC OTC [Suspect]
     Active Substance: OMEPRAZOLE MAGNESIUM
     Route: 048
  14. PREDNISONE. [Concomitant]
     Active Substance: PREDNISONE
  15. AZATHIOPRINE. [Concomitant]
     Active Substance: AZATHIOPRINE
  16. GLIMEPIRIDE. [Concomitant]
     Active Substance: GLIMEPIRIDE

REACTIONS (6)
  - Chronic kidney disease [Unknown]
  - Renal failure [Unknown]
  - Renal injury [Unknown]
  - Rebound acid hypersecretion [Unknown]
  - End stage renal disease [Unknown]
  - Renal impairment [Unknown]
